FAERS Safety Report 14575714 (Version 6)
Quarter: 2022Q3

REPORT INFORMATION
  Report Type: Report from Study
  Country: BR (occurrence: None)
  Receive Date: 20180227
  Receipt Date: 20220913
  Transmission Date: 20221026
  Serious: Yes (Hospitalization)
  Sender: FDA-Public Use
  Company Number: BR-ROCHE-2078072

PATIENT
  Age: 57 Year
  Sex: Female
  Weight: 50 kg

DRUGS (26)
  1. ATEZOLIZUMAB [Suspect]
     Active Substance: ATEZOLIZUMAB
     Indication: Triple negative breast cancer
     Dosage: DATE OF MOST RECENT DOSE OF IV ATEZOLIZUMAB (EVERY 2 WEEKS) PRIOR TO SAE ONSET WAS 07/FEB/2018 AT 17
     Route: 041
     Dates: start: 20180207
  2. PACLITAXEL [Suspect]
     Active Substance: PACLITAXEL
     Indication: Triple negative breast cancer
     Dosage: FOR 12 WEEKS (AS PER PROTOCOL).?DATE OF MOST RECENT DOSE OF IV NAB-PACLITAXEL (185 MG, EVERY WEEK) P
     Route: 042
     Dates: start: 20180207
  3. ACETAMINOPHEN\CODEINE PHOSPHATE [Concomitant]
     Active Substance: ACETAMINOPHEN\CODEINE PHOSPHATE
     Indication: Pain
     Dates: start: 20180223, end: 20180305
  4. MORPHINE [Concomitant]
     Active Substance: MORPHINE
     Indication: Pain
     Dates: start: 20180224, end: 20180302
  5. NYSTATIN [Concomitant]
     Active Substance: NYSTATIN
     Indication: Mucosal inflammation
     Dates: start: 20180226, end: 20180312
  6. NYSTATIN [Concomitant]
     Active Substance: NYSTATIN
     Route: 067
     Dates: start: 20180302, end: 20180312
  7. FILGRASTIM [Concomitant]
     Active Substance: FILGRASTIM
     Indication: Neutropenia
     Dates: start: 20180222, end: 20180223
  8. FENOTEROL [Concomitant]
     Active Substance: FENOTEROL
     Dates: start: 20180224, end: 20180406
  9. MINERAL OIL [Concomitant]
     Active Substance: MINERAL OIL
     Indication: Constipation
     Dates: start: 20180220, end: 20180222
  10. METAMIZOLE SODIUM [Concomitant]
     Active Substance: METAMIZOLE SODIUM
     Indication: Pain
     Dates: start: 20180220, end: 20180220
  11. METAMIZOLE SODIUM [Concomitant]
     Active Substance: METAMIZOLE SODIUM
     Indication: Pyrexia
  12. METOCLOPRAMIDE [Concomitant]
     Active Substance: METOCLOPRAMIDE
     Indication: Nausea
     Dates: start: 20180220, end: 20180224
  13. METOCLOPRAMIDE [Concomitant]
     Active Substance: METOCLOPRAMIDE
     Indication: Vomiting
  14. POTASSIUM CHLORIDE [Concomitant]
     Active Substance: POTASSIUM CHLORIDE
     Dates: start: 20180226, end: 20180226
  15. ACETAMINOPHEN [Concomitant]
     Active Substance: ACETAMINOPHEN
     Indication: Pain
     Dates: start: 20180220, end: 20180220
  16. FUROSEMIDE [Concomitant]
     Active Substance: FUROSEMIDE
     Indication: Oedema
     Dates: start: 20180302, end: 20180304
  17. FUROSEMIDE [Concomitant]
     Active Substance: FUROSEMIDE
     Dates: start: 20180302, end: 20180303
  18. OMEPRAZOLE [Concomitant]
     Active Substance: OMEPRAZOLE
     Indication: Gastritis
     Dates: start: 20180220, end: 20180313
  19. ENOXAPARIN [Concomitant]
     Active Substance: ENOXAPARIN
     Indication: Thrombosis
     Dates: start: 20180227, end: 20180305
  20. ENOXAPARIN [Concomitant]
     Active Substance: ENOXAPARIN
     Dates: start: 20180306, end: 20180313
  21. CAPTOPRIL [Concomitant]
     Active Substance: CAPTOPRIL
     Indication: Hypertension
     Dates: start: 20180302, end: 20180302
  22. ALBUTEROL [Concomitant]
     Active Substance: ALBUTEROL
     Dates: start: 20180302, end: 20180302
  23. GLYCERIN [Concomitant]
     Active Substance: GLYCERIN
     Indication: Constipation
     Route: 054
     Dates: start: 20180302, end: 20180306
  24. MAGNESIUM SULFATE [Concomitant]
     Active Substance: MAGNESIUM SULFATE
     Indication: Gastritis
     Dates: start: 20180305, end: 20180309
  25. IVERMECTIN [Concomitant]
     Active Substance: IVERMECTIN
     Dates: start: 20180312, end: 20180312
  26. ALBENDAZOLE [Concomitant]
     Active Substance: ALBENDAZOLE
     Dates: start: 20180312, end: 20180312

REACTIONS (1)
  - Pneumonia [Recovered/Resolved]

NARRATIVE: CASE EVENT DATE: 20180218
